FAERS Safety Report 8559711-9 (Version None)
Quarter: 2012Q3

REPORT INFORMATION
  Report Type: 
  Country: None (occurrence: None)
  Receive Date: 20120802
  Receipt Date: 20120727
  Transmission Date: 20120928
  Serious: Yes (Death, Other)
  Sender: FDA-Public Use
  Company Number: FR-PFIZER INC-2012182157

PATIENT
  Age: 65 Year
  Sex: Male

DRUGS (8)
  1. NOVORAPID [Concomitant]
     Dosage: UNK
     Route: 058
     Dates: start: 19990101
  2. LEVOTHYROXINE SODIUM [Concomitant]
     Dosage: 150 UG, 1X/DAY
     Route: 048
     Dates: start: 20090101
  3. GAVISCON [Concomitant]
  4. SUTENT [Suspect]
     Dosage: 50 MG, 1X/DAY(CURES OF 4 WEEKS)
     Route: 048
     Dates: start: 20070201, end: 20120531
  5. PERINDOPRIL ERBUMINE [Concomitant]
     Dosage: 2.5 MG, 1X/DAY
     Route: 048
     Dates: start: 20090101, end: 20120601
  6. PANTOPRAZOLE [Concomitant]
     Dosage: 20 MG, 1X/DAY
  7. NOVOLOG MIX 70/30 [Concomitant]
     Dosage: UNK
     Route: 058
     Dates: start: 19990101
  8. NEURONTIN [Concomitant]
     Dosage: 600 MG, 2X/DAY
     Route: 048
     Dates: start: 20070101, end: 20120604

REACTIONS (10)
  - MYOSITIS [None]
  - HAEMOLYTIC ANAEMIA [None]
  - MULTI-ORGAN FAILURE [None]
  - HEPATITIS CHOLESTATIC [None]
  - CARDIO-RESPIRATORY ARREST [None]
  - TUBULOINTERSTITIAL NEPHRITIS [None]
  - ENCEPHALITIS [None]
  - HEPATIC FAILURE [None]
  - THROMBOTIC MICROANGIOPATHY [None]
  - THROMBOCYTOPENIA [None]
